FAERS Safety Report 10477373 (Version 2)
Quarter: 2014Q4

REPORT INFORMATION
  Report Type: Spontaneous
  Country: GB (occurrence: GB)
  Receive Date: 20140926
  Receipt Date: 20141021
  Transmission Date: 20150528
  Serious: Yes (Death)
  Sender: FDA-Public Use
  Company Number: GB-AUROBINDO-AUR-APL-2014-10089

PATIENT
  Age: 18 Year
  Sex: Male

DRUGS (2)
  1. MIRTAZAPINE FILM-COATED TABLETS 15MG (MIRTAZAPINE) FILM-COATED TABLET, 15MG [Suspect]
     Active Substance: MIRTAZAPINE
     Indication: INSOMNIA
     Dosage: 15 MG, DAILY
     Route: 065
     Dates: start: 20120622, end: 201304
  2. MIRTAZAPINE FILM-COATED TABLETS 15MG (MIRTAZAPINE) FILM-COATED TABLET, 15MG [Suspect]
     Active Substance: MIRTAZAPINE
     Indication: ANXIETY

REACTIONS (1)
  - Completed suicide [Fatal]

NARRATIVE: CASE EVENT DATE: 20131019
